FAERS Safety Report 4399068-0 (Version None)
Quarter: 2004Q3

REPORT INFORMATION
  Report Type: 
  Country: None (occurrence: None)
  Receive Date: 20040712
  Receipt Date: 20040622
  Transmission Date: 20050211
  Serious: Yes (Other)
  Sender: FDA-Public Use
  Company Number: A03200401539

PATIENT
  Age: 72 Year
  Sex: Male
  Weight: 76.2043 kg

DRUGS (4)
  1. UROXATRAL - ALFUZOSIN HYDROCHLORIDE - TABLET - 10 MG [Suspect]
     Indication: BENIGN PROSTATIC HYPERPLASIA
     Dosage: 10 MG QD-ORAL
     Route: 048
     Dates: start: 20040101, end: 20040501
  2. CARDIZEM [Suspect]
     Indication: HYPERTENSION
     Dosage: 240 MG QD-ORAL
     Route: 048
     Dates: start: 19990101
  3. ATORVASTATIN CALCIUM [Concomitant]
  4. ASPIRIN [Concomitant]

REACTIONS (1)
  - ATRIAL FLUTTER [None]
